FAERS Safety Report 9412290 (Version 1)
Quarter: 2013Q3

REPORT INFORMATION
  Report Type: Spontaneous
  Country: DE (occurrence: DE)
  Receive Date: 20130722
  Receipt Date: 20130722
  Transmission Date: 20140515
  Serious: Yes (Other)
  Sender: FDA-Public Use
  Company Number: DE-PFIZER INC-2013211416

PATIENT
  Age: 63 Year
  Sex: Female

DRUGS (3)
  1. IRINOTECAN HCL [Suspect]
  2. FOLINIC ACID [Concomitant]
  3. FLUOROURACIL [Concomitant]

REACTIONS (1)
  - Polyneuropathy [Unknown]
